FAERS Safety Report 7435023-1 (Version None)
Quarter: 2011Q2

REPORT INFORMATION
  Report Type: 
  Country: None (occurrence: None)
  Receive Date: 20110425
  Receipt Date: 20110414
  Transmission Date: 20111010
  Serious: Yes (Hospitalization, Other)
  Sender: FDA-Public Use
  Company Number: AT-ASTRAZENECA-2011SE22008

PATIENT
  Sex: Female
  Weight: 66 kg

DRUGS (1)
  1. ARIMIDEX [Suspect]
     Indication: BREAST CANCER
     Route: 048
     Dates: start: 20090930, end: 20110414

REACTIONS (2)
  - ENDOMETRIAL HYPERPLASIA [None]
  - MENORRHAGIA [None]
